FAERS Safety Report 4423588-3 (Version None)
Quarter: 2004Q3

REPORT INFORMATION
  Report Type: 
  Country: None (occurrence: None)
  Receive Date: 20040805
  Receipt Date: 20040721
  Transmission Date: 20050211
  Serious: No
  Sender: FDA-Public Use
  Company Number: 04P-167-0267895-00

PATIENT
  Sex: Male

DRUGS (1)
  1. DEPAKOTE [Suspect]

REACTIONS (1)
  - ATROPHY [None]
